FAERS Safety Report 9869210 (Version 1)
Quarter: 2014Q1

REPORT INFORMATION
  Report Type: Report from Study
  Country: US (occurrence: US)
  Receive Date: 20140205
  Receipt Date: 20140205
  Transmission Date: 20141002
  Serious: Yes (Other)
  Sender: FDA-Public Use
  Company Number: PHEH2014US001747

PATIENT
  Sex: Female

DRUGS (2)
  1. AFINITOR [Suspect]
     Dosage: 10 MG, QD
     Route: 048
  2. FEMARA [Concomitant]
     Dosage: UNK UKN, UNK
     Dates: start: 199905, end: 201106

REACTIONS (9)
  - Carpal tunnel syndrome [Unknown]
  - Physical disability [Unknown]
  - Vitamin D deficiency [Unknown]
  - Back pain [Unknown]
  - Anaemia [Unknown]
  - Diarrhoea [Unknown]
  - Blood cholesterol increased [Unknown]
  - Fatigue [Unknown]
  - Arthralgia [Unknown]
